FAERS Safety Report 5350733-8 (Version None)
Quarter: 2007Q2

REPORT INFORMATION
  Report Type: 
  Country: None (occurrence: None)
  Receive Date: 20070608
  Receipt Date: 20070531
  Transmission Date: 20071010
  Serious: Yes (Other)
  Sender: FDA-Public Use
  Company Number: FR-ABBOTT-07P-056-0366867-00

PATIENT
  Age: 81 Year
  Sex: Male

DRUGS (7)
  1. VALPROIC ACID [Suspect]
     Indication: GRAND MAL CONVULSION
     Route: 048
  2. VALPROIC ACID [Suspect]
     Indication: EPILEPSY
  3. VALPROIC ACID [Suspect]
  4. VALPROIC ACID [Suspect]
  5. VALPROIC ACID [Suspect]
  6. VALPROIC ACID [Suspect]
  7. NICARDIPINE HYDROCHLORIDE [Concomitant]
     Indication: HYPERTENSION

REACTIONS (2)
  - COGNITIVE DISORDER [None]
  - NEUROLOGICAL SYMPTOM [None]
